FAERS Safety Report 25914474 (Version 1)
Quarter: 2025Q4

REPORT INFORMATION
  Report Type: Report from Study
  Country: EU (occurrence: EU)
  Receive Date: 20251013
  Receipt Date: 20251013
  Transmission Date: 20260117
  Serious: Yes (Other)
  Sender: TEVA
  Company Number: EU-TEVA-VS-3380089

PATIENT
  Age: 81 Year
  Sex: Female

DRUGS (13)
  1. TERIPARATIDE [Suspect]
     Active Substance: TERIPARATIDE
     Indication: Osteoporosis
     Route: 065
     Dates: start: 20250421, end: 20251002
  2. TAMSULOSIN [Concomitant]
     Active Substance: TAMSULOSIN
     Indication: Renal colic
     Dosage: DOSE: ONE IN THE MORNING
     Dates: start: 20250918, end: 20250922
  3. ACETAMINOPHEN\TRAMADOL [Concomitant]
     Active Substance: ACETAMINOPHEN\TRAMADOL
     Indication: Pain
     Dosage: DOSE: ONE IN THE MORNING AND ONE AT NIGHT
  4. ELIQUIS [Concomitant]
     Active Substance: APIXABAN
     Indication: Anticoagulant therapy
     Dosage: DOSE: ONE IN THE MORNING AND ONE AT NIGHT
  5. SERTRALINE HYDROCHLORIDE [Concomitant]
     Active Substance: SERTRALINE HYDROCHLORIDE
     Indication: Depression
     Dosage: DOSE: ONE IN THE MORNING
  6. ENALAPRIL [Concomitant]
     Active Substance: ENALAPRIL
     Indication: Hypertension
     Dosage: DOSE: ONE IN THE MORNING
  7. SIMVASTATIN [Concomitant]
     Active Substance: SIMVASTATIN
     Indication: Dyslipidaemia
     Dosage: DOSE: ONE AT NIGHT
  8. PREDNISONE [Concomitant]
     Active Substance: PREDNISONE
     Indication: Rheumatoid arthritis
     Dosage: DOSE: ONE IN THE MORNING
  9. CALCIUM CARBONATE\CHOLECALCIFEROL [Concomitant]
     Active Substance: CALCIUM CARBONATE\CHOLECALCIFEROL
     Indication: Osteoporosis
     Dosage: FORM STRENGTH: 1000/800 DOSE: ONE IN THE MORNING
  10. Lexatin [Concomitant]
     Indication: Depression
     Dosage: DOSE: ONE IN THE MORNING AND ONE AT NIGHT
  11. FLECAINIDE ACETATE [Concomitant]
     Active Substance: FLECAINIDE ACETATE
     Indication: Arrhythmia
     Dosage: DOSE: HALF IN THE AFTERNOON
  12. AMLODIPINE [Concomitant]
     Active Substance: AMLODIPINE BESYLATE
     Indication: Hypertension
     Dosage: DOSE: ONE AT NIGHT
  13. MIRTAZAPINE [Concomitant]
     Active Substance: MIRTAZAPINE
     Indication: Depression
     Dosage: DOSE: ONE AT NIGHT

REACTIONS (6)
  - Depressed level of consciousness [Unknown]
  - Hypoaesthesia [Recovered/Resolved]
  - Rectal haemorrhage [Unknown]
  - Abdominal pain [Unknown]
  - Vomiting [Unknown]
  - Pain in extremity [Recovered/Resolved]

NARRATIVE: CASE EVENT DATE: 20250927
